FAERS Safety Report 9081967 (Version 2)
Quarter: 2013Q2

REPORT INFORMATION
  Report Type: Spontaneous
  Country: US (occurrence: US)
  Receive Date: 20130218
  Receipt Date: 20130429
  Transmission Date: 20140414
  Serious: Yes (Death)
  Sender: FDA-Public Use
  Company Number: US-PFIZER INC-2013057683

PATIENT
  Age: 78 Year
  Sex: Male

DRUGS (8)
  1. XALKORI [Suspect]
     Dosage: 250 MG, 2X/DAY (TAKE 1 CAPSULE)
     Route: 048
  2. SYNTHROID [Concomitant]
     Dosage: 100 UG, UNK
  3. XARELTO [Concomitant]
     Dosage: 10 MG, UNK
  4. METOPROLOL [Concomitant]
     Dosage: 100 MG, UNK
  5. ACIPHEX [Concomitant]
     Dosage: 20 MG, UNK
  6. CO-Q-10 [Concomitant]
     Dosage: 30 MG, UNK
  7. CITRACAL + D [Concomitant]
     Dosage: UNK
  8. CENTRUM [Concomitant]
     Dosage: UNK

REACTIONS (3)
  - Death [Fatal]
  - Hypoaesthesia oral [Unknown]
  - Haemoptysis [Unknown]
